FAERS Safety Report 9829263 (Version 1)
Quarter: 2014Q1

REPORT INFORMATION
  Report Type: Spontaneous
  Country: US (occurrence: US)
  Receive Date: 20140120
  Receipt Date: 20140120
  Transmission Date: 20141002
  Serious: No
  Sender: FDA-Public Use
  Company Number: US-009507513-1401USA005661

PATIENT
  Age: 70 Year
  Sex: Female

DRUGS (3)
  1. AZASITE [Suspect]
     Indication: EYE INFLAMMATION
     Dosage: ONE DROP IN EACH EYE, DAILY
     Route: 047
     Dates: start: 2011
  2. AZASITE [Suspect]
     Dosage: 2 GTT, QD
     Route: 047
  3. COUMADIN [Concomitant]

REACTIONS (1)
  - Inappropriate schedule of drug administration [Unknown]
